FAERS Safety Report 6192423-8 (Version None)
Quarter: 2009Q2

REPORT INFORMATION
  Report Type: 
  Country: None (occurrence: None)
  Receive Date: 20090513
  Receipt Date: 20090506
  Transmission Date: 20091009
  Serious: Yes (Life-Threatening, Hospitalization)
  Sender: FDA-Public Use
  Company Number: 2009-196285-NL

PATIENT
  Age: 48 Year
  Sex: Female

DRUGS (2)
  1. MIRTAZAPINE [Suspect]
  2. OLANZAPINE [Suspect]
     Dosage: DF

REACTIONS (1)
  - STATUS EPILEPTICUS [None]
